FAERS Safety Report 6138911-1 (Version None)
Quarter: 2009Q1

REPORT INFORMATION
  Report Type: 
  Country: None (occurrence: None)
  Receive Date: 20090331
  Receipt Date: 20090330
  Transmission Date: 20090719
  Serious: No
  Sender: FDA-Public Use
  Company Number: US-B.I. PHARMACEUTICALS,INC./RIDGEFIELD-2009-BP-02689BP

PATIENT
  Sex: Male

DRUGS (8)
  1. SPIRIVA [Suspect]
     Indication: CHRONIC OBSTRUCTIVE PULMONARY DISEASE
     Dosage: 18MCG
     Dates: end: 20090302
  2. TOPROL-XL [Concomitant]
     Dosage: 100MG
  3. ENALAPRIL [Concomitant]
  4. MAXAIR [Concomitant]
  5. ADVAIR HFA [Concomitant]
  6. PREVACID [Concomitant]
     Dosage: 30MG
  7. SEROQUEL [Concomitant]
     Dosage: 50MG
  8. XANAX [Concomitant]
     Dosage: .5MG

REACTIONS (1)
  - VISION BLURRED [None]
